FAERS Safety Report 18466727 (Version 1)
Quarter: 2020Q4

REPORT INFORMATION
  Report Type: Spontaneous
  Country: IT (occurrence: IT)
  Receive Date: 20201105
  Receipt Date: 20201105
  Transmission Date: 20210114
  Serious: Yes (Life-Threatening, Hospitalization)
  Sender: FDA-Public Use
  Company Number: IT-LUPIN PHARMACEUTICALS INC.-2020-08275

PATIENT
  Age: 60 Year
  Sex: Female

DRUGS (13)
  1. FENTANYL. [Suspect]
     Active Substance: FENTANYL
     Indication: PRODUCT USED FOR UNKNOWN INDICATION
     Dosage: 0.1 MILLIGRAM
     Route: 065
  2. TIROFIBAN [Concomitant]
     Active Substance: TIROFIBAN
     Indication: ANTIPLATELET THERAPY
     Dosage: 0.4 MICROGRAM/KILOGRAM (INTRAVENOUS BOLUS  )
     Route: 042
  3. ATORVASTATIN [Concomitant]
     Active Substance: ATORVASTATIN
     Indication: PRODUCT USED FOR UNKNOWN INDICATION
     Dosage: 80 MILLIGRAM, QD
     Route: 065
  4. TIROFIBAN [Concomitant]
     Active Substance: TIROFIBAN
     Dosage: 0.1 MICROGRAM/KILOGRAM (INFUSION )
     Route: 042
  5. ACETYLSALICYLIC ACID [Concomitant]
     Active Substance: ASPIRIN
     Indication: ANTIPLATELET THERAPY
     Dosage: 100 MILLIGRAM, QD
     Route: 042
  6. CANGRELOR [Concomitant]
     Active Substance: CANGRELOR
     Indication: ANTIPLATELET THERAPY
     Dosage: 30 MICROGRAM/KILOGRAM (INTRAVENOUS BOLUS)
     Route: 042
  7. MORPHINE [Suspect]
     Active Substance: MORPHINE
     Indication: PRODUCT USED FOR UNKNOWN INDICATION
     Dosage: 3 MILLIGRAM
     Route: 042
  8. TICAGRELOR. [Interacting]
     Active Substance: TICAGRELOR
     Indication: ANTIPLATELET THERAPY
     Dosage: 180 MILLIGRAM
     Route: 065
  9. WARFARIN [Concomitant]
     Active Substance: WARFARIN
     Indication: ANTIPLATELET THERAPY
     Dosage: 30 MICROGRAM/KILOGRAM (INTRAVENOUS BOLUS  )
     Route: 042
  10. RAMIPRIL. [Concomitant]
     Active Substance: RAMIPRIL
     Indication: PRODUCT USED FOR UNKNOWN INDICATION
     Dosage: 5 MILLIGRAM, QD
     Route: 065
  11. CANGRELOR [Concomitant]
     Active Substance: CANGRELOR
     Dosage: 4 MICROGRAM/KILOGRAM (INFUSION)
     Route: 042
  12. ACETYLSALICYLIC ACID [Concomitant]
     Active Substance: ASPIRIN
     Dosage: 100 MILLIGRAM, QD
     Route: 048
  13. BISOPROLOL [Concomitant]
     Active Substance: BISOPROLOL
     Indication: PRODUCT USED FOR UNKNOWN INDICATION
     Dosage: 2.5 MILLIGRAM, QD
     Route: 065

REACTIONS (2)
  - Drug interaction [Unknown]
  - Drug level decreased [Unknown]
